FAERS Safety Report 23874892 (Version 1)
Quarter: 2024Q2

REPORT INFORMATION
  Report Type: Spontaneous
  Country: US (occurrence: None)
  Receive Date: 20240520
  Receipt Date: 20240520
  Transmission Date: 20240715
  Serious: Yes (Hospitalization)
  Sender: FDA-Public Use
  Company Number: None

PATIENT
  Age: 20 Year
  Sex: Male
  Weight: 61.23 kg

DRUGS (2)
  1. MEKINIST [Suspect]
     Active Substance: TRAMETINIB DIMETHYL SULFOXIDE
     Indication: Face oedema
     Dosage: FREQUENCY : DAILY;?
     Route: 048
     Dates: start: 20240426, end: 20240513
  2. VITAMIN B-2 [Concomitant]

REACTIONS (6)
  - Rash [None]
  - Generalised oedema [None]
  - Pustule [None]
  - Pyrexia [None]
  - Discomfort [None]
  - Diarrhoea [None]

NARRATIVE: CASE EVENT DATE: 20240513
